FAERS Safety Report 11023194 (Version 1)
Quarter: 2015Q2

REPORT INFORMATION
  Report Type: Spontaneous
  Country: US (occurrence: US)
  Receive Date: 20150413
  Receipt Date: 20150413
  Transmission Date: 20150821
  Serious: No
  Sender: FDA-Public Use
  Company Number: US-CELGENEUS-USA-2015033213

PATIENT
  Age: 48 Year
  Sex: Male
  Weight: 82.6 kg

DRUGS (1)
  1. POMALYST [Suspect]
     Active Substance: POMALIDOMIDE
     Indication: PLASMA CELL MYELOMA
     Route: 048
     Dates: start: 20140709

REACTIONS (1)
  - Blood pressure abnormal [Recovered/Resolved with Sequelae]

NARRATIVE: CASE EVENT DATE: 20150216
